FAERS Safety Report 6773634-7 (Version None)
Quarter: 2010Q2

REPORT INFORMATION
  Report Type: 
  Country: None (occurrence: None)
  Receive Date: 20100614
  Receipt Date: 20100610
  Transmission Date: 20101027
  Serious: Yes (Hospitalization, Disabling, Other)
  Sender: FDA-Public Use
  Company Number: 10IL001311

PATIENT
  Age: 11 Month
  Sex: Male

DRUGS (2)
  1. VALPROIC ACID [Suspect]
     Indication: MYOCLONIC EPILEPSY
     Dosage: 5 MG/KG/D INCREASING Q3D TO 24MG/KG/DAY
  2. CLONAZEPAM [Concomitant]

REACTIONS (18)
  - ACUTE HEPATIC FAILURE [None]
  - ALPERS' DISEASE [None]
  - BLINDNESS CORTICAL [None]
  - BRAIN INJURY [None]
  - BRAIN OEDEMA [None]
  - CEREBRAL ATROPHY [None]
  - COMA HEPATIC [None]
  - DISSEMINATED INTRAVASCULAR COAGULATION [None]
  - HEPATIC FAILURE [None]
  - HEPATITIS ACUTE [None]
  - HYPERAMMONAEMIA [None]
  - HYPERPYREXIA [None]
  - NO THERAPEUTIC RESPONSE [None]
  - PARTIAL SEIZURES [None]
  - QUADRIPLEGIA [None]
  - RENAL FAILURE [None]
  - STATUS EPILEPTICUS [None]
  - THERAPEUTIC AGENT TOXICITY [None]
